FAERS Safety Report 5072418-8 (Version None)
Quarter: 2006Q3

REPORT INFORMATION
  Report Type: 
  Country: None (occurrence: None)
  Receive Date: 20060801
  Receipt Date: 20060718
  Transmission Date: 20061208
  Serious: Yes (Hospitalization)
  Sender: FDA-Public Use
  Company Number: US200607003288

PATIENT
  Age: 67 Year
  Sex: Male

DRUGS (12)
  1. HUMALOG MIX 75/25 [Suspect]
     Indication: DIABETES MELLITUS
     Dosage: 50 U, 2/D, SUBCUTANEOUS
     Route: 058
     Dates: start: 20030101
  2. POTKLOR (POTASSIUM CHLORIDE) [Concomitant]
  3. LEVOXYL [Concomitant]
  4. LOVASTATIN [Concomitant]
  5. AMITRIPTYLINE HCL [Concomitant]
  6. DOXAZOSIN [Concomitant]
  7. WARFARIN SODIUM [Concomitant]
  8. FUROSEMIDE [Concomitant]
  9. COREG [Concomitant]
  10. DIGOXIN [Concomitant]
  11. BENAZEPRIL HYDROCHLORIDE [Concomitant]
  12. TEMAZEPAM [Concomitant]

REACTIONS (4)
  - BLOOD GLUCOSE INCREASED [None]
  - CARDIAC FAILURE CONGESTIVE [None]
  - PHARMACEUTICAL PRODUCT COMPLAINT [None]
  - VISUAL ACUITY REDUCED [None]
